FAERS Safety Report 9363059 (Version 2)
Quarter: 2013Q3

REPORT INFORMATION
  Report Type: Spontaneous
  Country: US (occurrence: US)
  Receive Date: 20130624
  Receipt Date: 20130710
  Transmission Date: 20140515
  Serious: No
  Sender: FDA-Public Use
  Company Number: US-PFIZER INC-2013187535

PATIENT
  Age: 52 Year
  Sex: Male
  Weight: 63.49 kg

DRUGS (2)
  1. CHANTIX [Suspect]
     Indication: SMOKING CESSATION THERAPY
     Dosage: 1 MG, 2X/DAY
     Dates: start: 2013, end: 20130623
  2. HYDROXYZINE PAMOATE [Suspect]
     Indication: SLEEP DISORDER
     Dosage: UNK
     Dates: start: 20130626, end: 20130701

REACTIONS (5)
  - Insomnia [Not Recovered/Not Resolved]
  - Agitation [Not Recovered/Not Resolved]
  - Aggression [Not Recovered/Not Resolved]
  - Logorrhoea [Not Recovered/Not Resolved]
  - Drug ineffective [Unknown]
